FAERS Safety Report 12906999 (Version 1)
Quarter: 2016Q4

REPORT INFORMATION
  Report Type: Spontaneous
  Country: US (occurrence: US)
  Receive Date: 20161101
  Receipt Date: 20161101
  Transmission Date: 20170207
  Serious: Yes (Life-Threatening, Other)
  Sender: FDA-Public Use
  Company Number: None

PATIENT
  Age: 86 Year
  Sex: Female

DRUGS (1)
  1. MEGESTROL ACET [Suspect]
     Active Substance: MEGESTROL ACETATE
     Indication: UNDERWEIGHT
     Dosage: 40 MG 2 TABLESPOONS TWICE A DAY ORAL?
     Route: 048
     Dates: start: 20160901, end: 20161031

REACTIONS (3)
  - Headache [None]
  - Libido decreased [None]
  - Erectile dysfunction [None]

NARRATIVE: CASE EVENT DATE: 20161001
